FAERS Safety Report 9293197 (Version 1)
Quarter: 2013Q2

REPORT INFORMATION
  Report Type: Spontaneous
  Country: NL (occurrence: NL)
  Receive Date: 20130516
  Receipt Date: 20130516
  Transmission Date: 20140414
  Serious: Yes (Hospitalization)
  Sender: FDA-Public Use
  Company Number: NL-BAXTER-2012BAX028120

PATIENT
  Age: 34 Year
  Sex: Female

DRUGS (1)
  1. KIOVIG 100 MG/ML SOLUTION POUR PERFUSION (1 G/10 ML) [Suspect]
     Indication: IDIOPATHIC THROMBOCYTOPENIC PURPURA
     Route: 042
     Dates: start: 20121022, end: 20121022

REACTIONS (1)
  - Pulmonary embolism [Recovering/Resolving]
